FAERS Safety Report 16014034 (Version 1)
Quarter: 2019Q1

REPORT INFORMATION
  Report Type: Spontaneous
  Country: GB (occurrence: GB)
  Receive Date: 20190227
  Receipt Date: 20190227
  Transmission Date: 20190418
  Serious: Yes (Disabling)
  Sender: FDA-Public Use
  Company Number: GB-TEVA-2019-GB-1017057

PATIENT
  Age: 23 Year

DRUGS (1)
  1. PHENOXYMETHYLPENICILLIN [Suspect]
     Active Substance: PENICILLIN V
     Route: 065
     Dates: end: 20190130

REACTIONS (5)
  - Pyrexia [Unknown]
  - Faeces discoloured [Unknown]
  - Diarrhoea [Unknown]
  - Colitis [Unknown]
  - Neutrophil count increased [Unknown]
